FAERS Safety Report 7589764-6 (Version None)
Quarter: 2011Q3

REPORT INFORMATION
  Report Type: 
  Country: None (occurrence: None)
  Receive Date: 20110705
  Receipt Date: 20110623
  Transmission Date: 20111222
  Serious: Yes (Other)
  Sender: FDA-Public Use
  Company Number: US-BAYER-2011-055239

PATIENT
  Sex: Female

DRUGS (1)
  1. MIRENA [Suspect]
     Indication: CONTRACEPTION
     Dosage: 20 MCG/24HR, CONT
     Route: 015
     Dates: start: 20110119, end: 20110503

REACTIONS (5)
  - PELVIC PAIN [None]
  - DISCOMFORT [None]
  - ADVERSE DRUG REACTION [None]
  - OVARIAN CYST RUPTURED [None]
  - GENERAL PHYSICAL HEALTH DETERIORATION [None]
